FAERS Safety Report 6167554-9 (Version None)
Quarter: 2009Q2

REPORT INFORMATION
  Report Type: 
  Country: None (occurrence: None)
  Receive Date: 20090424
  Receipt Date: 20090414
  Transmission Date: 20091009
  Serious: Yes (Other)
  Sender: FDA-Public Use
  Company Number: US-PFIZER INC-2009192458

PATIENT
  Sex: Female

DRUGS (9)
  1. CHANTIX [Suspect]
     Indication: SMOKING CESSATION THERAPY
     Dosage: UNKNOWN
     Dates: start: 20090309, end: 20090301
  2. DIOVAN [Concomitant]
     Dosage: UNKNOWN
  3. EFFEXOR [Concomitant]
     Indication: DEPRESSION
     Dosage: UNKNOWN
  4. EFFEXOR [Concomitant]
     Indication: MIGRAINE
  5. VITAMIN B-12 [Concomitant]
     Dosage: UNKNOWN
  6. VITAMIN E [Concomitant]
     Dosage: UNKNOWN
  7. VITAMIN D [Concomitant]
     Dosage: UNKNOWN
  8. IRON [Concomitant]
     Dosage: UNKNOWN
  9. LOVAZA [Concomitant]
     Dosage: UNKNOWN

REACTIONS (3)
  - ANGER [None]
  - HOMICIDAL IDEATION [None]
  - MOOD SWINGS [None]
